FAERS Safety Report 9054413 (Version 1)
Quarter: 2013Q1

REPORT INFORMATION
  Report Type: Spontaneous
  Country: US (occurrence: US)
  Receive Date: 20130208
  Receipt Date: 20130208
  Transmission Date: 20140127
  Serious: No
  Sender: FDA-Public Use
  Company Number: US-GLAXOSMITHKLINE-A0960437A

PATIENT
  Age: 68 Year
  Sex: Female

DRUGS (13)
  1. PAXIL [Suspect]
     Indication: PRODUCT USED FOR UNKNOWN INDICATION
     Dosage: 10MG UNKNOWN
     Route: 048
  2. LUNESTA [Suspect]
     Indication: INSOMNIA
  3. ESTAZOLAM [Concomitant]
     Dates: start: 201111
  4. OMNARIS [Concomitant]
     Dates: start: 20111110
  5. ABILIFY [Concomitant]
  6. CHLORTAB [Concomitant]
  7. GARLIC [Concomitant]
  8. VITAMIN B12 [Concomitant]
  9. VITAMIN C [Concomitant]
  10. HYDROCHLOROTHIAZIDE [Concomitant]
     Dates: start: 201111
  11. XANAX [Concomitant]
  12. SOLIFENACIN SUCCINATE [Concomitant]
  13. ANALGESIC [Concomitant]

REACTIONS (3)
  - Restless legs syndrome [Unknown]
  - Middle insomnia [Unknown]
  - Drug hypersensitivity [Unknown]
